FAERS Safety Report 6688180-9 (Version None)
Quarter: 2010Q2

REPORT INFORMATION
  Report Type: 
  Country: None (occurrence: None)
  Receive Date: 20100420
  Receipt Date: 20100414
  Transmission Date: 20101027
  Serious: Yes (Death)
  Sender: FDA-Public Use
  Company Number: JP-BAYER-201010171BYL

PATIENT
  Age: 57 Year
  Sex: Male
  Weight: 64 kg

DRUGS (14)
  1. NEXAVAR [Suspect]
     Indication: HEPATIC NEOPLASM MALIGNANT
     Dosage: TOTAL DAILY DOSE: 800 MG  UNIT DOSE: 200 MG
     Route: 048
     Dates: start: 20090818, end: 20090828
  2. URSO 250 [Concomitant]
     Route: 048
     Dates: start: 20090818, end: 20090828
  3. ALINAMIN-F [Concomitant]
     Route: 048
     Dates: start: 20090818, end: 20090828
  4. GLYCYRON [Concomitant]
     Route: 048
     Dates: start: 20090818, end: 20090828
  5. METHYCOBAL [Concomitant]
     Route: 048
     Dates: start: 20090818, end: 20090828
  6. PROHEPARUM [Concomitant]
     Route: 048
     Dates: start: 20090818, end: 20090828
  7. BERIZYM [Concomitant]
     Route: 048
     Dates: start: 20090818, end: 20090828
  8. AMLODIN OD [Concomitant]
     Route: 048
     Dates: start: 20090818, end: 20090828
  9. ALDACTONE [Concomitant]
     Route: 048
     Dates: start: 20090818, end: 20090828
  10. LASIX [Concomitant]
     Route: 048
     Dates: start: 20090818, end: 20090828
  11. LOXONIN [Concomitant]
     Route: 048
     Dates: start: 20090818, end: 20090828
  12. TIZANIDINE HCL [Concomitant]
     Route: 048
     Dates: start: 20090818, end: 20090828
  13. CYTOTEC [Concomitant]
     Route: 048
     Dates: start: 20090818, end: 20090828
  14. UREPEARL [Concomitant]
     Indication: PROPHYLAXIS
     Route: 061
     Dates: start: 20090818, end: 20090828

REACTIONS (2)
  - METASTASES TO LUNG [None]
  - RASH [None]
